FAERS Safety Report 12540902 (Version 1)
Quarter: 2016Q3

REPORT INFORMATION
  Report Type: Spontaneous
  Country: US (occurrence: US)
  Receive Date: 20160708
  Receipt Date: 20160708
  Transmission Date: 20161109
  Serious: No
  Sender: FDA-Public Use
  Company Number: US-009507513-1606USA011565

PATIENT
  Age: 41 Year
  Sex: Female

DRUGS (1)
  1. EMEND [Suspect]
     Active Substance: APREPITANT
     Indication: NAUSEA
     Dosage: UNK
     Route: 042
     Dates: start: 20160310, end: 20160317

REACTIONS (6)
  - Respiration abnormal [Recovered/Resolved]
  - Abdominal pain [Recovered/Resolved]
  - Anxiety [Recovered/Resolved]
  - Heart rate abnormal [Recovered/Resolved]
  - Blood pressure abnormal [Recovered/Resolved]
  - Flushing [Recovered/Resolved]

NARRATIVE: CASE EVENT DATE: 20160310
